FAERS Safety Report 18043802 (Version 1)
Quarter: 2020Q3

REPORT INFORMATION
  Report Type: Spontaneous
  Country: GB (occurrence: GB)
  Receive Date: 20200720
  Receipt Date: 20200720
  Transmission Date: 20201103
  Serious: Yes (Hospitalization)
  Sender: FDA-Public Use
  Company Number: GB-PERRIGO-20GB010124

PATIENT
  Age: 17 Year
  Sex: Male

DRUGS (1)
  1. CETIRIZINE HYDROCHLORIDE. [Suspect]
     Active Substance: CETIRIZINE HYDROCHLORIDE
     Indication: PRODUCT USED FOR UNKNOWN INDICATION
     Dosage: 10?20MG ONCE DAILY AS NECESSARY
     Route: 048
     Dates: start: 2018, end: 202004

REACTIONS (5)
  - Drug-induced liver injury [Recovering/Resolving]
  - Langerhans^ cell histiocytosis [Unknown]
  - Eosinophilia [Unknown]
  - Pyrexia [Unknown]
  - Jaundice [Unknown]

NARRATIVE: CASE EVENT DATE: 202004
